FAERS Safety Report 4890346-5 (Version None)
Quarter: 2005Q4

REPORT INFORMATION
  Report Type: 
  Country: None (occurrence: None)
  Receive Date: 20051220
  Receipt Date: 20051004
  Transmission Date: 20060501
  Serious: Yes (Other)
  Sender: FDA-Public Use
  Company Number: 407158

PATIENT
  Age: 53 Year
  Sex: Female
  Weight: 88.5 kg

DRUGS (1)
  1. BONIVA [Suspect]
     Indication: RIB FRACTURE
     Dosage: ORAL
     Route: 048
     Dates: start: 20050615, end: 20050615

REACTIONS (7)
  - ABDOMINAL PAIN UPPER [None]
  - DIARRHOEA [None]
  - FLATULENCE [None]
  - INFLUENZA LIKE ILLNESS [None]
  - OEDEMA PERIPHERAL [None]
  - PYREXIA [None]
  - STOMACH DISCOMFORT [None]
